FAERS Safety Report 9112655 (Version 7)
Quarter: 2016Q3

REPORT INFORMATION
  Report Type: Spontaneous
  Country: US (occurrence: US)
  Receive Date: 20130211
  Receipt Date: 20160907
  Transmission Date: 20161109
  Serious: Yes (Hospitalization, Other)
  Sender: FDA-Public Use
  Company Number: US-009507513-1302USA004235

PATIENT
  Sex: Female
  Weight: 62.59 kg

DRUGS (10)
  1. FOSAMAX [Suspect]
     Active Substance: ALENDRONATE SODIUM
     Dosage: 70 MG, QW
     Route: 048
     Dates: start: 20020624, end: 200610
  2. VITAMINS (UNSPECIFIED) [Concomitant]
     Active Substance: VITAMINS
     Indication: PRODUCT USED FOR UNKNOWN INDICATION
     Dosage: 1 UNK, QD
     Route: 048
     Dates: start: 1995
  3. FOSAMAX [Suspect]
     Active Substance: ALENDRONATE SODIUM
     Indication: OSTEOPENIA
     Dosage: 5 MG, QAM
     Route: 065
     Dates: start: 19991011
  4. ESTROGEN NOS [Concomitant]
     Active Substance: ESTROGENS
     Indication: PRODUCT USED FOR UNKNOWN INDICATION
     Dosage: UNK
     Route: 065
     Dates: start: 1994
  5. FOSAMAX [Suspect]
     Active Substance: ALENDRONATE SODIUM
     Dosage: 70 MG, QW
     Route: 048
     Dates: start: 20070905, end: 200802
  6. HORMONES (UNSPECIFIED) [Concomitant]
     Active Substance: UNSPECIFIED INGREDIENT
     Indication: PRODUCT USED FOR UNKNOWN INDICATION
     Dosage: UNK
     Route: 065
     Dates: start: 1995, end: 2005
  7. BONIVA [Suspect]
     Active Substance: IBANDRONATE SODIUM
     Indication: OSTEOPENIA
     Dosage: 150 MG, UNK
     Route: 065
     Dates: start: 20061101, end: 200710
  8. BONIVA [Suspect]
     Active Substance: IBANDRONATE SODIUM
     Dosage: 150 MG, UNK
     Dates: start: 20090506, end: 20100816
  9. FOSAMAX [Suspect]
     Active Substance: ALENDRONATE SODIUM
     Dosage: 40 MG, UNK
     Route: 048
     Dates: start: 199910, end: 200206
  10. ALENDRONATE SODIUM. [Suspect]
     Active Substance: ALENDRONATE SODIUM
     Indication: OSTEOPENIA
     Dosage: 70 MG, UNK
     Route: 065
     Dates: start: 20080307, end: 200904

REACTIONS (29)
  - Low turnover osteopathy [Unknown]
  - Rosacea [Unknown]
  - Haemoglobin abnormal [Recovered/Resolved]
  - Haematocrit abnormal [Recovered/Resolved]
  - Hypercholesterolaemia [Unknown]
  - Mood swings [Recovering/Resolving]
  - Arthralgia [Unknown]
  - Uterine dilation and curettage [Unknown]
  - Oedema peripheral [Recovering/Resolving]
  - Vaginal discharge [Unknown]
  - Uterine atrophy [Unknown]
  - Hot flush [Unknown]
  - Oedema peripheral [Unknown]
  - Tooth fracture [Unknown]
  - Drug administration error [Unknown]
  - Menorrhagia [Unknown]
  - Hot flush [Recovering/Resolving]
  - Intramedullary rod insertion [Unknown]
  - Oral surgery [Unknown]
  - Oedema [Unknown]
  - Osteoporosis [Unknown]
  - Musculoskeletal pain [Unknown]
  - Femur fracture [Recovering/Resolving]
  - Postmenopausal haemorrhage [Recovering/Resolving]
  - Blood oestrogen abnormal [Unknown]
  - Vulvovaginal dryness [Unknown]
  - Postmenopausal haemorrhage [Unknown]
  - Atrophy [Unknown]
  - Irritability [Recovering/Resolving]

NARRATIVE: CASE EVENT DATE: 199910
